FAERS Safety Report 4705962-0 (Version None)
Quarter: 2005Q2

REPORT INFORMATION
  Report Type: 
  Country: None (occurrence: None)
  Receive Date: 20050629
  Receipt Date: 20050617
  Transmission Date: 20051028
  Serious: Yes (Other)
  Sender: FDA-Public Use
  Company Number: 2005089624

PATIENT
  Age: 60 Year
  Sex: Female
  Weight: 47.6277 kg

DRUGS (4)
  1. BENADRYL [Suspect]
     Indication: SEASONAL ALLERGY
     Dosage: 1/2 TABLET AT NIGHT, ORAL
     Route: 048
     Dates: start: 20050416, end: 20050519
  2. LEVOTHYROXINE SODIUM [Concomitant]
  3. ESTRADIOL [Concomitant]
  4. HERBAL PREPARATION (HERBAL PREPARATION) [Concomitant]

REACTIONS (1)
  - EYE HAEMORRHAGE [None]
